FAERS Safety Report 17848703 (Version 5)
Quarter: 2020Q4

REPORT INFORMATION
  Report Type: Report from Study
  Country: CA (occurrence: CA)
  Receive Date: 20200602
  Receipt Date: 20201216
  Transmission Date: 20210113
  Serious: Yes (Other)
  Sender: FDA-Public Use
  Company Number: PHHY2019CA058083

PATIENT
  Age: 68 Year
  Sex: Male

DRUGS (5)
  1. OCTREOTIDE. [Concomitant]
     Active Substance: OCTREOTIDE
     Indication: CARCINOID TUMOUR
     Dosage: 100 UG, TID
     Route: 058
     Dates: start: 20190126
  2. SANDOSTATIN LAR DEPOT [Suspect]
     Active Substance: OCTREOTIDE ACETATE
  3. SANDOSTATIN LAR DEPOT [Suspect]
     Active Substance: OCTREOTIDE ACETATE
     Indication: CARCINOID TUMOUR
     Dosage: 30 MG, QMO (EVERY 4 WEEKS)
     Route: 030
     Dates: start: 20190208
  4. BISOPROLOL [Concomitant]
     Active Substance: BISOPROLOL
     Indication: CARDIAC DISORDER
     Dosage: 5 MG, QD
     Route: 048
     Dates: start: 2007
  5. SANDOSTATIN LAR DEPOT [Suspect]
     Active Substance: OCTREOTIDE ACETATE

REACTIONS (15)
  - White blood cell count increased [Unknown]
  - Pruritus [Recovered/Resolved]
  - Carcinoid tumour [Unknown]
  - Serum serotonin increased [Unknown]
  - Sleep disorder [Unknown]
  - Gout [Unknown]
  - Back pain [Unknown]
  - Urticaria [Recovered/Resolved]
  - Muscle injury [Unknown]
  - Blood pressure increased [Unknown]
  - Flushing [Recovering/Resolving]
  - Neck pain [Recovering/Resolving]
  - Gastrointestinal motility disorder [Unknown]
  - Erythema [Unknown]
  - Malignant neoplasm progression [Unknown]

NARRATIVE: CASE EVENT DATE: 2019
